FAERS Safety Report 7516859-5 (Version None)
Quarter: 2011Q2

REPORT INFORMATION
  Report Type: 
  Country: None (occurrence: None)
  Receive Date: 20110429
  Receipt Date: 20101019
  Transmission Date: 20111010
  Serious: Yes (Hospitalization)
  Sender: FDA-Public Use
  Company Number: US-JNJFOC-20101005437

PATIENT
  Age: 54 Year
  Sex: Male
  Weight: 109.3169 kg

DRUGS (10)
  1. LISINOPRIL [Concomitant]
  2. PREDNISONE [Concomitant]
  3. LIPITOR [Concomitant]
  4. TYLENOL (CAPLET) [Suspect]
     Indication: PRODUCT USED FOR UNKNOWN INDICATION
     Dosage: ORAL
     Route: 048
     Dates: start: 20081224, end: 20081224
  5. LEXAPRO [Suspect]
     Indication: DEPRESSION
     Dosage: 20 MG, 1 IN 1 DAY
     Dates: start: 20070621
  6. ACYCLOVIR [Concomitant]
  7. ATIVAN [Concomitant]
  8. NEXIUM [Concomitant]
  9. ATENOLOL [Concomitant]
  10. STUDY MEDICATION (INVESTIGATIONAL DRUG) [Concomitant]

REACTIONS (1)
  - INTENTIONAL OVERDOSE [None]
